FAERS Safety Report 14100952 (Version 1)
Quarter: 2017Q4

REPORT INFORMATION
  Report Type: Spontaneous
  Country: US (occurrence: None)
  Receive Date: 20171017
  Receipt Date: 20171017
  Transmission Date: 20180321
  Serious: Yes (Death, Hospitalization, Other)
  Sender: FDA-Public Use
  Company Number: None

PATIENT
  Age: 77 Year
  Sex: Male
  Weight: 83.46 kg

DRUGS (16)
  1. TIKOSYN [Concomitant]
     Active Substance: DOFETILIDE
  2. C PAP MACHINE [Concomitant]
  3. HYDRALAZINE [Concomitant]
     Active Substance: HYDRALAZINE HYDROCHLORIDE
  4. PROSCAR [Concomitant]
     Active Substance: FINASTERIDE
  5. TOMIK [Concomitant]
  6. ATRO... [Concomitant]
  7. SIMVASTATIN. [Concomitant]
     Active Substance: SIMVASTATIN
  8. AMYT [Concomitant]
  9. HYDROCODONE/TYLENOL [Concomitant]
  10. ELIQUIS [Suspect]
     Active Substance: APIXABAN
     Indication: ATRIAL FIBRILLATION
     Dosage: 1 PILL 8 12 HOURS BY MOUTH
     Route: 048
     Dates: start: 20150928, end: 20170825
  11. LASIX [Concomitant]
     Active Substance: FUROSEMIDE
  12. ASA [Concomitant]
     Active Substance: ASPIRIN
  13. ADVAIR HFA [Concomitant]
     Active Substance: FLUTICASONE PROPIONATE\SALMETEROL XINAFOATE
  14. WALKER CANE [Concomitant]
  15. NORVASC [Concomitant]
     Active Substance: AMLODIPINE BESYLATE
  16. MULTI VITS [Concomitant]
     Active Substance: VITAMINS

REACTIONS (3)
  - Fall [None]
  - Cerebrovascular accident [None]
  - Impaired healing [None]

NARRATIVE: CASE EVENT DATE: 20170825
